FAERS Safety Report 22621001 (Version 1)
Quarter: 2023Q2

REPORT INFORMATION
  Report Type: Spontaneous
  Country: CA (occurrence: CA)
  Receive Date: 20230620
  Receipt Date: 20230620
  Transmission Date: 20230721
  Serious: Yes (Death, Other)
  Sender: FDA-Public Use
  Company Number: CA-FreseniusKabi-FK202308732

PATIENT
  Age: 74 Year
  Sex: Female

DRUGS (8)
  1. MORPHINE [Suspect]
     Active Substance: MORPHINE
     Indication: Product used for unknown indication
     Dosage: DOSAGE FORM: NOT SPECIFIED
     Route: 065
  2. SANDOSTATIN [Suspect]
     Active Substance: OCTREOTIDE ACETATE
     Indication: Acromegaly
     Dosage: DOSAGE FORM: NOT SPECIFIED
     Route: 030
  3. CODEINE [Suspect]
     Active Substance: CODEINE
     Indication: Product used for unknown indication
     Dosage: DOSAGE FORM: NOT SPECIFIED
     Route: 065
  4. CORTEF [Concomitant]
     Active Substance: HYDROCORTISONE
     Indication: Product used for unknown indication
     Dosage: DOSAGE FORM: NOT SPECIFIED
     Route: 065
  5. OLMESARTAN MEDOXOMIL [Concomitant]
     Active Substance: OLMESARTAN MEDOXOMIL
     Indication: Product used for unknown indication
     Route: 065
  6. CARVEDILOL [Concomitant]
     Active Substance: CARVEDILOL
     Indication: Product used for unknown indication
     Route: 065
  7. ROSUVASTATIN CALCIUM [Concomitant]
     Active Substance: ROSUVASTATIN CALCIUM
     Indication: Product used for unknown indication
     Route: 065
  8. TERAZOSIN HYDROCHLORIDE [Concomitant]
     Active Substance: TERAZOSIN HYDROCHLORIDE
     Indication: Product used for unknown indication
     Route: 065

REACTIONS (20)
  - Back disorder [Fatal]
  - Blood pressure increased [Fatal]
  - Body temperature decreased [Fatal]
  - Bradycardia [Fatal]
  - Cystitis [Fatal]
  - Death [Fatal]
  - Hypertonic bladder [Fatal]
  - Drug hypersensitivity [Fatal]
  - Illness [Fatal]
  - Influenza [Fatal]
  - Kidney infection [Fatal]
  - Injection site discomfort [Fatal]
  - Injection site discomfort [Fatal]
  - Injection site haemorrhage [Fatal]
  - Movement disorder [Fatal]
  - Needle issue [Fatal]
  - Pain [Fatal]
  - Sciatica [Fatal]
  - Injection site nerve damage [Fatal]
  - Blood pressure systolic increased [Fatal]
